FAERS Safety Report 7730815-3 (Version None)
Quarter: 2011Q3

REPORT INFORMATION
  Report Type: 
  Country: None (occurrence: None)
  Receive Date: 20110901
  Receipt Date: 20110901
  Transmission Date: 20111222
  Serious: Yes (Other)
  Sender: FDA-Public Use
  Company Number: None

PATIENT
  Age: 81 Year
  Sex: Male
  Weight: 71.5323 kg

DRUGS (1)
  1. AMLODIPINE BESYLATE [Suspect]
     Indication: HYPERTENSION
     Dosage: 2.5 MG DAILY BY MOUTH
     Route: 048
     Dates: start: 20101115, end: 20110731

REACTIONS (2)
  - PHARYNGEAL OEDEMA [None]
  - LOCAL SWELLING [None]
